FAERS Safety Report 6765589-6 (Version None)
Quarter: 2010Q2

REPORT INFORMATION
  Report Type: 
  Country: None (occurrence: None)
  Receive Date: 20100610
  Receipt Date: 20100610
  Transmission Date: 20101027
  Serious: Yes (Hospitalization, Other)
  Sender: FDA-Public Use
  Company Number: None

PATIENT
  Sex: Female
  Weight: 72.1219 kg

DRUGS (2)
  1. PROTONIX [Suspect]
  2. ZEGERID [Suspect]

REACTIONS (5)
  - CHEST PAIN [None]
  - CONDITION AGGRAVATED [None]
  - GASTROOESOPHAGEAL REFLUX DISEASE [None]
  - NO THERAPEUTIC RESPONSE [None]
  - ODYNOPHAGIA [None]
